FAERS Safety Report 6656835-8 (Version None)
Quarter: 2010Q1

REPORT INFORMATION
  Report Type: 
  Country: None (occurrence: None)
  Receive Date: 20100325
  Receipt Date: 20100319
  Transmission Date: 20100710
  Serious: Yes (Hospitalization, Other)
  Sender: FDA-Public Use
  Company Number: 1000012617

PATIENT
  Age: 77 Year
  Sex: Female

DRUGS (3)
  1. LEVOTHROID [Suspect]
     Indication: HYPOTHYROIDISM
     Dosage: 100 MCG (100 MCG, 1 IN 1 D), ORAL
     Route: 048
     Dates: start: 20090901, end: 20100319
  2. ACETAMINOPHEN PM [Concomitant]
  3. TYLENOL-500 [Concomitant]

REACTIONS (3)
  - DEHYDRATION [None]
  - FALL [None]
  - FEELING COLD [None]
